FAERS Safety Report 10653990 (Version 1)
Quarter: 2014Q4

REPORT INFORMATION
  Report Type: Spontaneous
  Country: US (occurrence: None)
  Receive Date: 20141212
  Receipt Date: 20141212
  Transmission Date: 20150529
  Serious: Yes (Hospitalization)
  Sender: FDA-Public Use
  Company Number: US-H14001-14-01778

PATIENT
  Age: 55 Year
  Sex: Male

DRUGS (15)
  1. VANCOMYCIN [Concomitant]
     Active Substance: VANCOMYCIN
  2. PIPERACILLIN/TAZOBACTAM (PIP/TAZO) (UNKNOWN) (PIPERACILLIN SODIUM, TAZOBACTAM SODIUM) [Concomitant]
  3. ATORVASTATIN [Concomitant]
     Active Substance: ATORVASTATIN
  4. CLOPIDOGREL [Concomitant]
     Active Substance: CLOPIDOGREL BISULFATE
  5. METOPROLOL [Concomitant]
     Active Substance: METOPROLOL
  6. SEVELAMER [Concomitant]
     Active Substance: SEVELAMER
  7. CLONIDINE. [Concomitant]
     Active Substance: CLONIDINE
  8. EPOETIN (EPOETIN ALFA) [Concomitant]
  9. INSULIN GLARGINE [Concomitant]
     Active Substance: INSULIN GLARGINE
  10. OXYCODONE [Concomitant]
     Active Substance: OXYCODONE
  11. GABAPENTIN. [Suspect]
     Active Substance: GABAPENTIN
     Indication: NEURALGIA
  12. HYDROMORPHONE [Concomitant]
     Active Substance: HYDROMORPHONE
  13. AMLODIPINE [Concomitant]
     Active Substance: AMLODIPINE BESYLATE
  14. HYDRALAZINE [Concomitant]
     Active Substance: HYDRALAZINE HYDROCHLORIDE
  15. LANTHANUM (LANTHANUM CARBONATE) [Concomitant]

REACTIONS (7)
  - Myoclonus [None]
  - Mental status changes [None]
  - Hypotension [None]
  - Lethargy [None]
  - Confusional state [None]
  - Blood creatinine increased [None]
  - Blood urea increased [None]
